FAERS Safety Report 18036587 (Version 3)
Quarter: 2020Q3

REPORT INFORMATION
  Report Type: Spontaneous
  Country: US (occurrence: US)
  Receive Date: 20200717
  Receipt Date: 20200902
  Transmission Date: 20201103
  Serious: No
  Sender: FDA-Public Use
  Company Number: US-ASTRAZENECA-2020SE88271

PATIENT
  Age: 493 Month
  Sex: Male
  Weight: 63.5 kg

DRUGS (1)
  1. BEVESPI AEROSPHERE [Suspect]
     Active Substance: FORMOTEROL FUMARATE\GLYCOPYRROLATE
     Indication: CHRONIC OBSTRUCTIVE PULMONARY DISEASE
     Dosage: 9MCG/4.8MCG 120 INHALATIONS, 2 PUFFS, TWICE DAILY
     Route: 055
     Dates: start: 202006

REACTIONS (6)
  - Device malfunction [Unknown]
  - Lung disorder [Unknown]
  - Dizziness [Unknown]
  - Dyspnoea [Unknown]
  - Cough [Unknown]
  - Drug dose omission by device [Unknown]

NARRATIVE: CASE EVENT DATE: 202006
